FAERS Safety Report 13256139 (Version 1)
Quarter: 2017Q1

REPORT INFORMATION
  Report Type: Spontaneous
  Country: US (occurrence: US)
  Receive Date: 20170221
  Receipt Date: 20170221
  Transmission Date: 20170428
  Serious: Yes (Death, Hospitalization, Other)
  Sender: FDA-Public Use
  Company Number: US-SA-2017SA028399

PATIENT
  Age: 27 Year
  Sex: Female

DRUGS (2)
  1. LEMTRADA [Suspect]
     Active Substance: ALEMTUZUMAB
     Indication: MULTIPLE SCLEROSIS
     Route: 041
     Dates: start: 20170126, end: 20170128
  2. LEMTRADA [Suspect]
     Active Substance: ALEMTUZUMAB
     Indication: MULTIPLE SCLEROSIS
     Route: 042
     Dates: start: 201509

REACTIONS (15)
  - Cardiac arrest [Fatal]
  - Renal failure [Unknown]
  - Confusional state [Unknown]
  - Colitis [Unknown]
  - White blood cell count increased [Unknown]
  - Heart rate increased [Unknown]
  - Multiple sclerosis relapse [Unknown]
  - Pruritus [Unknown]
  - Pain in extremity [Unknown]
  - Lactic acidosis [Unknown]
  - Liver function test increased [Unknown]
  - Staphylococcal infection [Unknown]
  - Cellulitis [Unknown]
  - Hypertension [Unknown]
  - Blood pressure decreased [Unknown]

NARRATIVE: CASE EVENT DATE: 2016
